FAERS Safety Report 15069520 (Version 1)
Quarter: 2018Q2

REPORT INFORMATION
  Report Type: Spontaneous
  Country: US (occurrence: US)
  Receive Date: 20180626
  Receipt Date: 20180626
  Transmission Date: 20180711
  Serious: No
  Sender: FDA-Public Use
  Company Number: US-AMGEN-USASP2011039777

PATIENT

DRUGS (3)
  1. TAXOTERE [Concomitant]
     Active Substance: DOCETAXEL
  2. NEULASTA [Suspect]
     Active Substance: PEGFILGRASTIM
     Indication: CHEMOTHERAPY
     Dosage: UNK
     Dates: start: 20110707
  3. CYTOXAN [Concomitant]
     Active Substance: CYCLOPHOSPHAMIDE

REACTIONS (5)
  - Medication error [Unknown]
  - Myalgia [Unknown]
  - Pyrexia [Recovered/Resolved]
  - Headache [Unknown]
  - Bone pain [Unknown]

NARRATIVE: CASE EVENT DATE: 20110711
